FAERS Safety Report 7589693-8 (Version None)
Quarter: 2011Q3

REPORT INFORMATION
  Report Type: 
  Country: None (occurrence: None)
  Receive Date: 20110705
  Receipt Date: 20110623
  Transmission Date: 20111222
  Serious: Yes (Other)
  Sender: FDA-Public Use
  Company Number: US-BAYER-2011-054930

PATIENT
  Sex: Female

DRUGS (1)
  1. MIRENA [Suspect]
     Indication: OVARIAN CYST
     Dosage: UNK
     Dates: start: 20110623

REACTIONS (4)
  - POST PROCEDURAL HAEMORRHAGE [None]
  - UTERINE PERFORATION [None]
  - ABDOMINAL PAIN LOWER [None]
  - PROCEDURAL COMPLICATION [None]
